FAERS Safety Report 9927162 (Version 1)
Quarter: 2014Q1

REPORT INFORMATION
  Report Type: Spontaneous
  Country: US (occurrence: US)
  Receive Date: 20140226
  Receipt Date: 20140226
  Transmission Date: 20141002
  Serious: Yes (Disabling)
  Sender: FDA-Public Use
  Company Number: US-AMGEN-USASP2014006911

PATIENT
  Age: 59 Year
  Sex: Female
  Weight: 99.77 kg

DRUGS (1)
  1. ENBREL [Suspect]
     Indication: PSORIASIS
     Dosage: UNK UNK, Q2WK
     Route: 065
     Dates: start: 2001

REACTIONS (1)
  - Skin infection [Recovered/Resolved]
